FAERS Safety Report 7315045-1 (Version None)
Quarter: 2011Q1

REPORT INFORMATION
  Report Type: 
  Country: None (occurrence: None)
  Receive Date: 20110225
  Receipt Date: 20100317
  Transmission Date: 20110831
  Serious: No
  Sender: FDA-Public Use
  Company Number: US-MYLANLABS-2010S1004696

PATIENT
  Age: 14 Year
  Sex: Male

DRUGS (4)
  1. AMNESTEEM [Suspect]
     Indication: ACNE
     Route: 048
     Dates: start: 20090724, end: 20091022
  2. AMNESTEEM [Suspect]
     Route: 048
     Dates: start: 20091101, end: 20091226
  3. ADDERALL 10 [Concomitant]
  4. ZOLOFT [Concomitant]

REACTIONS (1)
  - LOCALISED INFECTION [None]
